FAERS Safety Report 20211503 (Version 1)
Quarter: 2021Q4

REPORT INFORMATION
  Report Type: Spontaneous
  Country: US (occurrence: None)
  Receive Date: 20211220
  Receipt Date: 20211220
  Transmission Date: 20220303
  Serious: Yes (Death)
  Sender: FDA-Public Use
  Company Number: None

PATIENT
  Sex: Female
  Weight: 49.9 kg

DRUGS (5)
  1. KISQALI FEMARA CO-PACK [Suspect]
     Active Substance: LETROZOLE\RIBOCICLIB
     Dosage: OTHER FREQUENCY : QD 21 OF 28 DAYS;?
     Route: 048
  2. ONDANSETRON [Concomitant]
     Active Substance: ONDANSETRON
  3. PREVACID [Concomitant]
     Active Substance: LANSOPRAZOLE
  4. GRANISETRON [Concomitant]
     Active Substance: GRANISETRON
  5. FERROUS SULFATE [Concomitant]
     Active Substance: FERROUS SULFATE

REACTIONS (1)
  - Death [None]
